FAERS Safety Report 9275332 (Version 3)
Quarter: 2013Q3

REPORT INFORMATION
  Report Type: Spontaneous
  Country: US (occurrence: US)
  Receive Date: 20130507
  Receipt Date: 20130923
  Transmission Date: 20140515
  Serious: Yes (Death, Other)
  Sender: FDA-Public Use
  Company Number: US-PFIZER INC-2013137051

PATIENT
  Age: 65 Year
  Sex: Male

DRUGS (2)
  1. INLYTA [Suspect]
     Indication: RENAL CANCER
     Dosage: 5 MG, 2X/DAY FOR 28 DAYS
     Dates: start: 20130319
  2. INLYTA [Suspect]
     Dosage: 10 MG  2X/DAY (TAKE 2 TABLETS BY MOUTH EVERY 12 HOURS)
     Route: 048
     Dates: start: 201303

REACTIONS (3)
  - Death [Fatal]
  - Tooth infection [Unknown]
  - Diarrhoea [Unknown]
